FAERS Safety Report 16000768 (Version 2)
Quarter: 2019Q1

REPORT INFORMATION
  Report Type: Spontaneous
  Country: PL (occurrence: PL)
  Receive Date: 20190225
  Receipt Date: 20190301
  Transmission Date: 20190418
  Serious: Yes (Other)
  Sender: FDA-Public Use
  Company Number: PL-PFIZER INC-2019077002

PATIENT
  Sex: Male

DRUGS (1)
  1. PYRALGINUM [Suspect]
     Active Substance: METAMIZOLE SODIUM
     Dosage: UNK

REACTIONS (2)
  - Seizure [Unknown]
  - Abdominal pain [Unknown]
